FAERS Safety Report 9342032 (Version 1)
Quarter: 2013Q2

REPORT INFORMATION
  Report Type: Spontaneous
  Country: CA (occurrence: None)
  Receive Date: 20130606
  Receipt Date: 20130606
  Transmission Date: 20140414
  Serious: Yes (Disabling)
  Sender: FDA-Public Use
  Company Number: 1735610

PATIENT
  Age: 38 Year
  Sex: Male

DRUGS (1)
  1. CYTARABINE [Suspect]
     Indication: ACUTE MYELOID LEUKAEMIA
     Dosage: 5.8 G GRAM, 1 HOUR, INTRAVENOUS
     Route: 042

REACTIONS (4)
  - Toxicity to various agents [None]
  - Eye irritation [None]
  - Ocular hyperaemia [None]
  - Vision blurred [None]
